FAERS Safety Report 4806933-6 (Version None)
Quarter: 2005Q4

REPORT INFORMATION
  Report Type: 
  Country: None (occurrence: None)
  Receive Date: 20051019
  Receipt Date: 20051005
  Transmission Date: 20060501
  Serious: Yes (Hospitalization, Other)
  Sender: FDA-Public Use
  Company Number: DE_050917072

PATIENT
  Age: 13 Year
  Sex: Female
  Weight: 52 kg

DRUGS (1)
  1. STRATTERA [Suspect]
     Indication: ATTENTION DEFICIT/HYPERACTIVITY DISORDER
     Dosage: 60 MG DAY
     Dates: start: 20050701

REACTIONS (8)
  - ABNORMAL BEHAVIOUR [None]
  - AGGRESSION [None]
  - INTENTIONAL DRUG MISUSE [None]
  - MYDRIASIS [None]
  - OVERDOSE [None]
  - PUPILLARY LIGHT REFLEX TESTS ABNORMAL [None]
  - SUICIDE ATTEMPT [None]
  - TACHYCARDIA [None]
